FAERS Safety Report 6502439-7 (Version None)
Quarter: 2009Q4

REPORT INFORMATION
  Report Type: 
  Country: None (occurrence: None)
  Receive Date: 20091203
  Receipt Date: 20091126
  Transmission Date: 20100525
  Serious: Yes (Other)
  Sender: FDA-Public Use
  Company Number: WAES 0910USA00121

PATIENT
  Age: 78 Year
  Sex: Female

DRUGS (5)
  1. FOSAMAX [Suspect]
     Indication: OSTEOPOROSIS
     Dosage: 35 MG/WKY; PO
     Route: 048
     Dates: start: 20070928, end: 20071119
  2. FORSENID [Concomitant]
  3. MAGMITT [Concomitant]
  4. NAUZELIN [Concomitant]
  5. SELBEX [Concomitant]

REACTIONS (3)
  - ABDOMINAL DISCOMFORT [None]
  - CONDITION AGGRAVATED [None]
  - GASTRITIS ATROPHIC [None]
